FAERS Safety Report 11926272 (Version 1)
Quarter: 2016Q1

REPORT INFORMATION
  Report Type: Other
  Country: US (occurrence: US)
  Receive Date: 20160119
  Receipt Date: 20160119
  Transmission Date: 20160526
  Serious: Yes (Other)
  Sender: FDA-Public Use
  Company Number: US-LUPIN PHARMACEUTICALS INC.-2016-00136

PATIENT
  Age: 55 Year
  Sex: Male

DRUGS (2)
  1. NIACIN. [Concomitant]
     Active Substance: NIACIN
     Indication: HYPERLIPIDAEMIA
     Dosage: 2 G/D,
     Route: 065
  2. SIMVASTATIN. [Suspect]
     Active Substance: SIMVASTATIN
     Indication: HYPERLIPIDAEMIA
     Dosage: 20 MG
     Route: 065

REACTIONS (1)
  - Type I hypersensitivity [Recovered/Resolved]
